FAERS Safety Report 11952664 (Version 1)
Quarter: 2016Q1

REPORT INFORMATION
  Report Type: Spontaneous
  Country: US (occurrence: US)
  Receive Date: 20160126
  Receipt Date: 20160126
  Transmission Date: 20160526
  Serious: No
  Sender: FDA-Public Use
  Company Number: US-BAUSCH-BL-2015-022148

PATIENT
  Sex: Female
  Weight: 74.91 kg

DRUGS (1)
  1. NIFEDER [Suspect]
     Active Substance: NIFEDIPINE
     Indication: PRODUCT USED FOR UNKNOWN INDICATION
     Route: 048

REACTIONS (3)
  - Muscular weakness [Unknown]
  - Hyperhidrosis [Unknown]
  - Syncope [Unknown]
